FAERS Safety Report 10690021 (Version 2)
Quarter: 2015Q4

REPORT INFORMATION
  Report Type: Report from Study
  Country: US (occurrence: US)
  Receive Date: 20150105
  Receipt Date: 20151209
  Transmission Date: 20160304
  Serious: No
  Sender: FDA-Public Use
  Company Number: US-AMGEN INC.-USASL2014102480

PATIENT
  Age: 26 Year
  Sex: Male

DRUGS (1)
  1. ENBREL [Suspect]
     Active Substance: ETANERCEPT
     Indication: RHEUMATOID ARTHRITIS
     Dosage: 50 MG, QWK
     Route: 065
     Dates: start: 20141208, end: 20150908

REACTIONS (3)
  - Local swelling [Not Recovered/Not Resolved]
  - Joint swelling [Unknown]
  - Sinusitis [Unknown]

NARRATIVE: CASE EVENT DATE: 20141226
